FAERS Safety Report 23463484 (Version 2)
Quarter: 2024Q1

REPORT INFORMATION
  Report Type: Spontaneous
  Country: US (occurrence: US)
  Receive Date: 20240131
  Receipt Date: 20240209
  Transmission Date: 20240409
  Serious: Yes (Other)
  Sender: FDA-Public Use
  Company Number: US-009507513-2401USA014976

PATIENT
  Age: 83 Year
  Sex: Female
  Weight: 52.154 kg

DRUGS (8)
  1. DIFICID [Suspect]
     Active Substance: FIDAXOMICIN
     Indication: Clostridium difficile infection
     Dosage: 200 MILLIGRAM, BID
     Route: 048
     Dates: start: 202310
  2. DIFICID [Suspect]
     Active Substance: FIDAXOMICIN
     Dosage: 200 MILLIGRAM, BID
     Route: 048
     Dates: start: 202311
  3. DIFICID [Suspect]
     Active Substance: FIDAXOMICIN
     Dosage: 200 MILLIGRAM, BID
     Route: 048
     Dates: start: 20240121, end: 20240131
  4. DIFICID [Suspect]
     Active Substance: FIDAXOMICIN
     Dosage: 200 MILLIGRAM, QOD
     Route: 048
     Dates: start: 20240201
  5. VANCOMYCIN [Suspect]
     Active Substance: VANCOMYCIN
     Indication: Clostridium difficile infection
     Dosage: 125 MILLIGRAM, 4 X DAY
     Route: 048
     Dates: start: 20231021, end: 20231031
  6. VANCOMYCIN [Suspect]
     Active Substance: VANCOMYCIN
     Dosage: 1 TABLET (125 MG), QID
     Dates: start: 20231110, end: 202311
  7. VANCOMYCIN [Suspect]
     Active Substance: VANCOMYCIN
     Dosage: 1 TABLET (125 MG), BID
     Dates: start: 2023, end: 202312
  8. VANCOMYCIN [Suspect]
     Active Substance: VANCOMYCIN
     Dosage: 1 TABLET (125 MG), QOD
     Dates: end: 20240123

REACTIONS (4)
  - Clostridium difficile infection [Unknown]
  - Clostridium difficile infection [Unknown]
  - Clostridium difficile infection [Not Recovered/Not Resolved]
  - Inappropriate schedule of product administration [Unknown]

NARRATIVE: CASE EVENT DATE: 20231021
